FAERS Safety Report 9553626 (Version 1)
Quarter: 2013Q2

REPORT INFORMATION
  Report Type: Spontaneous
  Country: US (occurrence: None)
  Receive Date: 20130419
  Receipt Date: 20130419
  Transmission Date: 20140414
  Serious: Yes (Life-Threatening)
  Sender: FDA-Public Use
  Company Number: FK201300158

PATIENT
  Age: 70 Year
  Sex: Male
  Weight: 102.51 kg

DRUGS (11)
  1. HEPARIN SODIUM INJECTION [Suspect]
     Dosage: USP
     Route: 042
     Dates: start: 20121215
  2. ASA (ACETYLSALICYLIC ACID) [Concomitant]
  3. LIPITOR (ATORVASTATIN CALCIUIM) [Concomitant]
  4. METOPROLOL (METOPROLOL) [Concomitant]
  5. PRILOSEC [Concomitant]
  6. ZYRTEC [Concomitant]
  7. LASIX [Concomitant]
  8. COZAAR (OSARTAN POTASSIUM) [Concomitant]
  9. ALBUTEROL [Concomitant]
  10. APIDRA (INSULIN GLULISINE) [Concomitant]
  11. HEPARIN (HEPARIN) [Concomitant]

REACTIONS (1)
  - Hypotension [None]
